FAERS Safety Report 24051304 (Version 1)
Quarter: 2024Q3

REPORT INFORMATION
  Report Type: Spontaneous
  Country: US (occurrence: US)
  Receive Date: 20240704
  Receipt Date: 20240704
  Transmission Date: 20241016
  Serious: No
  Sender: SANOFI AVENTIS
  Company Number: US-SA-SAC20240625001240

PATIENT
  Age: 45 Year
  Sex: Male
  Weight: 79 kg

DRUGS (1)
  1. DUPIXENT [Suspect]
     Active Substance: DUPILUMAB
     Indication: Dermatitis atopic
     Dosage: 300 MG, QOW
     Route: 058
     Dates: start: 202309

REACTIONS (7)
  - Eyelid skin dryness [Unknown]
  - Condition aggravated [Unknown]
  - Eyelids pruritus [Unknown]
  - Condition aggravated [Unknown]
  - Eye pruritus [Unknown]
  - Condition aggravated [Unknown]
  - Dry eye [Unknown]
